FAERS Safety Report 23046917 (Version 1)
Quarter: 2023Q4

REPORT INFORMATION
  Report Type: Spontaneous
  Country: IT (occurrence: IT)
  Receive Date: 20231009
  Receipt Date: 20231009
  Transmission Date: 20240109
  Serious: Yes (Other)
  Sender: FDA-Public Use
  Company Number: IT-ViiV Healthcare Limited-IT2023GSK137948

PATIENT

DRUGS (5)
  1. DOLUTEGRAVIR SODIUM\LAMIVUDINE [Suspect]
     Active Substance: DOLUTEGRAVIR SODIUM\LAMIVUDINE
     Indication: HIV infection
     Dosage: UNK
  2. MARAVIROC [Suspect]
     Active Substance: MARAVIROC
     Indication: HIV infection
     Dosage: UNK
  3. DOLUTEGRAVIR [Suspect]
     Active Substance: DOLUTEGRAVIR
     Indication: HIV infection
     Dosage: 50 MG, 1D
  4. COBICISTAT\DARUNAVIR ETHANOLATE [Suspect]
     Active Substance: COBICISTAT\DARUNAVIR ETHANOLATE
     Indication: HIV infection
     Dosage: UNK
  5. DORAVIRINE [Suspect]
     Active Substance: DORAVIRINE
     Indication: HIV infection
     Dosage: 100 MG, 1D

REACTIONS (4)
  - Pathogen resistance [Unknown]
  - Virologic failure [Not Recovered/Not Resolved]
  - Viral mutation identified [Unknown]
  - Off label use [Unknown]
